FAERS Safety Report 8844916 (Version 2)
Quarter: 2014Q2

REPORT INFORMATION
  Report Type: Spontaneous
  Country: US (occurrence: US)
  Receive Date: 20121017
  Receipt Date: 20131018
  Transmission Date: 20141212
  Serious: Yes (Hospitalization, Other)
  Sender: FDA-Public Use
  Company Number: US-PFIZER INC-2012253222

PATIENT
  Age: 11 Year
  Sex: Male
  Weight: 40 kg

DRUGS (3)
  1. PHENYTOIN [Suspect]
     Dosage: 600 MG, 1X/DAY
  2. PHENOBARBITAL [Suspect]
     Dosage: 180 MG, 1X/DAY
  3. PRIMIDONE [Suspect]
     Dosage: 250 MG, 2X/DAY

REACTIONS (2)
  - Convulsion [Not Recovered/Not Resolved]
  - Anticonvulsant drug level decreased [Unknown]
